FAERS Safety Report 15889043 (Version 1)
Quarter: 2019Q1

REPORT INFORMATION
  Report Type: Spontaneous
  Country: US (occurrence: US)
  Receive Date: 20190129
  Receipt Date: 20190129
  Transmission Date: 20190417
  Serious: Yes (Disabling)
  Sender: FDA-Public Use
  Company Number: None

PATIENT
  Age: 42 Year
  Sex: Female
  Weight: 66.6 kg

DRUGS (1)
  1. NADOLOL 20 MG [Suspect]
     Active Substance: NADOLOL
     Indication: POSTURAL ORTHOSTATIC TACHYCARDIA SYNDROME
     Route: 048
     Dates: start: 20181106, end: 20181116

REACTIONS (6)
  - Cough [None]
  - Dyspnoea [None]
  - Dysphonia [None]
  - Swelling face [None]
  - Asthma [None]
  - Feeling abnormal [None]

NARRATIVE: CASE EVENT DATE: 20181106
